FAERS Safety Report 8803415 (Version 2)
Quarter: 2013Q1

REPORT INFORMATION
  Report Type: Spontaneous
  Country: BR (occurrence: BR)
  Receive Date: 20120924
  Receipt Date: 20130227
  Transmission Date: 20140127
  Serious: Yes (Other)
  Sender: FDA-Public Use
  Company Number: PHHY2012BR082275

PATIENT
  Sex: Female

DRUGS (3)
  1. TEGRETOL [Suspect]
     Indication: PETIT MAL EPILEPSY
     Dosage: 9 ML, TID
     Route: 048
  2. TEGRETOL [Suspect]
     Dosage: 7 ML, IN THE MORNING
     Route: 048
  3. URBANYL [Concomitant]
     Indication: PETIT MAL EPILEPSY
     Dosage: 1 DF, DAILY (1 TABLET A DAY)
     Route: 048

REACTIONS (2)
  - Attention deficit/hyperactivity disorder [Not Recovered/Not Resolved]
  - Petit mal epilepsy [Recovered/Resolved]
